FAERS Safety Report 6540855-8 (Version None)
Quarter: 2010Q1

REPORT INFORMATION
  Report Type: 
  Country: None (occurrence: None)
  Receive Date: 20100118
  Receipt Date: 20100112
  Transmission Date: 20100710
  Serious: Yes (Death, Hospitalization)
  Sender: FDA-Public Use
  Company Number: PHHY2009JP56322

PATIENT
  Age: 74 Year
  Sex: Female

DRUGS (7)
  1. TEGRETOL [Interacting]
     Indication: NEURALGIA
  2. MEXILETINE HYDROCHLORIDE [Suspect]
     Indication: NEURALGIA
  3. GEFITINIB [Interacting]
     Indication: LUNG ADENOCARCINOMA STAGE IV
  4. FENTANYL [Concomitant]
  5. NSAID'S [Concomitant]
  6. MORPHINE [Concomitant]
  7. GANCICLOVIR [Concomitant]

REACTIONS (15)
  - ASCITES [None]
  - DIARRHOEA [None]
  - DRUG RASH WITH EOSINOPHILIA AND SYSTEMIC SYMPTOMS [None]
  - ERYTHEMA [None]
  - HEPATIC FUNCTION ABNORMAL [None]
  - HYPOGLOBULINAEMIA [None]
  - INTERSTITIAL LUNG DISEASE [None]
  - LARGE INTESTINAL ULCER [None]
  - LUNG CANCER METASTATIC [None]
  - LYMPHOCYTOSIS [None]
  - METASTASES TO LIVER [None]
  - OEDEMA PERIPHERAL [None]
  - PYREXIA [None]
  - RASH GENERALISED [None]
  - SKIN EXFOLIATION [None]
